FAERS Safety Report 24687148 (Version 1)
Quarter: 2024Q4

REPORT INFORMATION
  Report Type: Spontaneous
  Country: US (occurrence: None)
  Receive Date: 20241130
  Receipt Date: 20241130
  Transmission Date: 20250115
  Serious: Yes (Disabling)
  Sender: Public
  Company Number: None

PATIENT
  Age: 36 Year
  Sex: Female
  Weight: 58.5 kg

DRUGS (3)
  1. CLOBETASOL [Suspect]
     Active Substance: CLOBETASOL
     Indication: Psoriasis
     Dosage: 50 DROPS AS NEEDED TOPICAL
     Route: 061
     Dates: start: 20240325, end: 20240901
  2. THORAZINE [Suspect]
     Active Substance: CHLORPROMAZINE
  3. SUBOXONE [Suspect]
     Active Substance: BUPRENORPHINE HYDROCHLORIDE\NALOXONE HYDROCHLORIDE

REACTIONS (5)
  - Syncope [None]
  - Illness [None]
  - Visual impairment [None]
  - Eye irritation [None]
  - Lip injury [None]

NARRATIVE: CASE EVENT DATE: 20240909
